FAERS Safety Report 5731553-9 (Version None)
Quarter: 2008Q2

REPORT INFORMATION
  Report Type: 
  Country: None (occurrence: None)
  Receive Date: 20080506
  Receipt Date: 20080421
  Transmission Date: 20081010
  Serious: Yes (Hospitalization)
  Sender: FDA-Public Use
  Company Number: 2008000943

PATIENT
  Age: 62 Year
  Sex: Male
  Weight: 108.2 kg

DRUGS (2)
  1. ERLOTINIB/PLACEBO(ERLOTINIB HCL) (TABLET) ERLOTINIB HCL) [Suspect]
     Indication: NON-SMALL CELL LUNG CANCER
     Dosage: 150 MG, QD, ORAL
     Route: 048
     Dates: start: 20080311
  2. BEVACIZUMAB (INJECTION FOR INFUSION) [Suspect]
     Indication: NON-SMALL CELL LUNG CANCER
     Dosage: 1620 MG, Q3W, INTRAVENOUS
     Route: 042
     Dates: start: 20071211

REACTIONS (4)
  - CULTURE URINE POSITIVE [None]
  - HYPOGLYCAEMIA [None]
  - INFLUENZA LIKE ILLNESS [None]
  - STAPHYLOCOCCAL INFECTION [None]
